FAERS Safety Report 5514702-7 (Version None)
Quarter: 2007Q4

REPORT INFORMATION
  Report Type: 
  Country: None (occurrence: None)
  Receive Date: 20071113
  Receipt Date: 20071101
  Transmission Date: 20080405
  Serious: Yes (Hospitalization)
  Sender: FDA-Public Use
  Company Number: CA-PFIZER INC-2007093087

PATIENT
  Sex: Male
  Weight: 62.5 kg

DRUGS (21)
  1. SUTENT [Suspect]
     Indication: ADENOID CYSTIC CARCINOMA
     Route: 048
  2. CRESTOR [Concomitant]
     Route: 048
     Dates: start: 20071002, end: 20071024
  3. LORAZEPAM [Concomitant]
     Route: 048
     Dates: start: 20070918, end: 20071024
  4. DEXAMETHASONE [Concomitant]
     Route: 048
     Dates: start: 20070821, end: 20071024
  5. ASPIRIN [Concomitant]
     Route: 048
     Dates: start: 20070901, end: 20071024
  6. TYLENOL [Concomitant]
     Route: 048
     Dates: start: 20070901, end: 20071024
  7. ALTACE [Concomitant]
     Route: 048
     Dates: start: 20010101, end: 20071024
  8. METFORMIN HCL [Concomitant]
     Route: 048
     Dates: start: 19970101, end: 20071024
  9. LOSEC [Concomitant]
     Route: 048
     Dates: start: 20030101, end: 20071024
  10. NORVASC [Concomitant]
     Route: 048
     Dates: start: 19970101, end: 20071024
  11. ELTROXIN [Concomitant]
     Route: 048
     Dates: start: 20040101, end: 20071024
  12. METRONIDAZOLE [Concomitant]
     Route: 048
  13. METRONIDAZOLE [Concomitant]
     Route: 042
  14. CEFTRIAXONE [Concomitant]
     Route: 042
  15. DIMENHYDRINATE [Concomitant]
     Route: 042
  16. DIMENHYDRINATE [Concomitant]
     Route: 030
  17. PROCHLORPERAZINE [Concomitant]
     Route: 058
  18. PROCHLORPERAZINE [Concomitant]
     Route: 042
  19. SCOPOLAMINE [Concomitant]
     Route: 058
  20. METOPROLOL TARTRATE [Concomitant]
     Route: 042
  21. HYDROMORPHONE HYDROCHLORIDE [Concomitant]
     Route: 058
     Dates: start: 20071025

REACTIONS (1)
  - TRACHEO-OESOPHAGEAL FISTULA [None]
